FAERS Safety Report 14938984 (Version 1)
Quarter: 2018Q2

REPORT INFORMATION
  Report Type: Spontaneous
  Country: US (occurrence: US)
  Receive Date: 20180507
  Receipt Date: 20180507
  Transmission Date: 20180711
  Serious: Yes (Hospitalization, Other)
  Sender: FDA-Public Use
  Company Number: None

PATIENT
  Age: 71 Year
  Sex: Male

DRUGS (13)
  1. ESBRIET [Suspect]
     Active Substance: PIRFENIDONE
     Indication: IDIOPATHIC PULMONARY FIBROSIS
     Route: 048
     Dates: start: 20160204
  2. METFORMIN [Concomitant]
     Active Substance: METFORMIN HYDROCHLORIDE
  3. OMEPRAZOLE. [Concomitant]
     Active Substance: OMEPRAZOLE
  4. CLOPIDOGREL [Concomitant]
     Active Substance: CLOPIDOGREL BISULFATE
  5. NAPROXEN. [Concomitant]
     Active Substance: NAPROXEN
  6. CEPHALEXIN. [Concomitant]
     Active Substance: CEPHALEXIN
  7. BENZONATATE. [Concomitant]
     Active Substance: BENZONATATE
  8. AMLODIPINE [Concomitant]
     Active Substance: AMLODIPINE BESYLATE
  9. OXYCODONE [Concomitant]
     Active Substance: OXYCODONE
  10. LISINOPRIL. [Concomitant]
     Active Substance: LISINOPRIL
  11. PRAVASTATIN. [Concomitant]
     Active Substance: PRAVASTATIN
  12. HYDROXYZ HCL [Concomitant]
     Active Substance: HYDROXYZINE HYDROCHLORIDE
  13. ONDANSETRON [Concomitant]
     Active Substance: ONDANSETRON

REACTIONS (2)
  - Dizziness [None]
  - Drug dose omission [None]

NARRATIVE: CASE EVENT DATE: 201804
